FAERS Safety Report 4283951-0 (Version None)
Quarter: 2004Q1

REPORT INFORMATION
  Report Type: 
  Country: None (occurrence: None)
  Receive Date: 20040202
  Receipt Date: 20040119
  Transmission Date: 20041129
  Serious: Yes (Hospitalization)
  Sender: FDA-Public Use
  Company Number: WAES 0401USA01648

PATIENT
  Age: 74 Year
  Sex: Male

DRUGS (9)
  1. [THERAPY UNSPECIFIED] [Suspect]
     Indication: CORONARY ARTERY DISEASE
     Route: 048
     Dates: end: 20030820
  2. ALLOPURINOL [Concomitant]
     Indication: HYPERURICAEMIA
     Route: 048
     Dates: end: 20030820
  3. ISCOVER [Concomitant]
     Indication: THROMBOSIS PROPHYLAXIS
     Route: 048
     Dates: start: 20010201
  4. DIGITOXIN [Suspect]
     Indication: ATRIAL FIBRILLATION
     Route: 048
     Dates: end: 20030820
  5. DELIX PLUS [Concomitant]
     Indication: HYPERTENSION
     Route: 048
     Dates: end: 20030820
  6. NITROLINGUAL [Suspect]
     Indication: CORONARY ARTERY DISEASE
     Route: 055
     Dates: end: 20030820
  7. ZOCOR [Suspect]
     Indication: HYPERLIPIDAEMIA
     Route: 048
     Dates: end: 20030820
  8. BRONCHORETARD [Suspect]
     Indication: BRONCHITIS CHRONIC
     Route: 048
     Dates: end: 20030820
  9. VERAPAMIL [Suspect]
     Indication: ATRIAL FIBRILLATION
     Route: 048
     Dates: end: 20030820

REACTIONS (8)
  - BRADYCARDIA [None]
  - COMA [None]
  - CYANOSIS [None]
  - DRUG INTERACTION [None]
  - LOSS OF CONSCIOUSNESS [None]
  - OPEN WOUND [None]
  - PNEUMONIA [None]
  - SYSTOLIC HYPERTENSION [None]
